FAERS Safety Report 11972297 (Version 2)
Quarter: 2016Q2

REPORT INFORMATION
  Report Type: Spontaneous
  Country: US (occurrence: US)
  Receive Date: 20160128
  Receipt Date: 20160407
  Transmission Date: 20160815
  Serious: Yes (Death, Other)
  Sender: FDA-Public Use
  Company Number: US-BIOGEN-2016BI00182064

PATIENT
  Age: 66 Year
  Sex: Female

DRUGS (3)
  1. AVONEX [Suspect]
     Active Substance: INTERFERON BETA-1A
     Indication: MULTIPLE SCLEROSIS
     Route: 030
     Dates: start: 20000601
  2. NEURONTIN [Concomitant]
     Active Substance: GABAPENTIN
     Indication: PAIN
     Route: 065
  3. CYMBALTA [Concomitant]
     Active Substance: DULOXETINE HYDROCHLORIDE
     Indication: PAIN
     Route: 065

REACTIONS (10)
  - Blood disorder [Unknown]
  - Cholecystectomy [Unknown]
  - Lung disorder [Unknown]
  - Diabetes mellitus [Unknown]
  - Infection [Unknown]
  - Death [Fatal]
  - Nephrolithiasis [Unknown]
  - Cardiomegaly [Unknown]
  - Thyroid disorder [Unknown]
  - Pancreatitis [Unknown]

NARRATIVE: CASE EVENT DATE: 20160119
